FAERS Safety Report 5853459-7 (Version None)
Quarter: 2008Q3

REPORT INFORMATION
  Report Type: 
  Country: None (occurrence: None)
  Receive Date: 20080820
  Receipt Date: 20080811
  Transmission Date: 20090109
  Serious: No
  Sender: FDA-Public Use
  Company Number: 2008-182038-NL

PATIENT
  Sex: Male

DRUGS (1)
  1. MIRTAZAPINE [Suspect]
     Route: 048
     Dates: start: 20080521, end: 20080524

REACTIONS (2)
  - HEART RATE IRREGULAR [None]
  - RESTLESSNESS [None]
